FAERS Safety Report 25443620 (Version 2)
Quarter: 2025Q4

REPORT INFORMATION
  Report Type: Spontaneous
  Country: US (occurrence: None)
  Receive Date: 20250617
  Receipt Date: 20251027
  Transmission Date: 20260117
  Serious: No
  Sender: UCB
  Company Number: US-UCBSA-2025018777

PATIENT
  Age: 50 Year
  Weight: 92.971 kg

DRUGS (2)
  1. BIMZELX [Suspect]
     Active Substance: BIMEKIZUMAB-BKZX
     Indication: Psoriasis
     Dosage: 320 MILLIGRAM, EV 4 WEEKS
  2. BIMZELX [Suspect]
     Active Substance: BIMEKIZUMAB-BKZX
     Dosage: 320 MILLIGRAM, EV 4 WEEKS

REACTIONS (5)
  - Self-consciousness [Not Recovered/Not Resolved]
  - Psoriasis [Not Recovered/Not Resolved]
  - Cough [Recovered/Resolved]
  - Dysphagia [Recovered/Resolved]
  - Drug ineffective [Unknown]
